FAERS Safety Report 5241458-8 (Version None)
Quarter: 2007Q1

REPORT INFORMATION
  Report Type: 
  Country: None (occurrence: None)
  Receive Date: 20070212
  Receipt Date: 20070126
  Transmission Date: 20070707
  Serious: Yes (Other)
  Sender: FDA-Public Use
  Company Number: AZAUS200700041

PATIENT
  Age: 47 Year
  Sex: Female

DRUGS (2)
  1. VIDAZA [Suspect]
     Indication: MYELODYSPLASTIC SYNDROME
     Dosage: 40 MG/M2 (DAYS 1 TO 10, EVERY 28 DAYS), SUBCUTANEOUS
     Route: 058
     Dates: start: 20061218, end: 20061227
  2. MS-275 (INVESTIGATIONAL HISTONE DEACETYLASE INHIBITOR) (INVESTIGATIONA [Suspect]
     Indication: MYELODYSPLASTIC SYNDROME
     Dosage: 4 MG/M2 (DAYS 3 AND 10, VERY 28 DAYS), ORAL
     Route: 048
     Dates: start: 20061220, end: 20061227

REACTIONS (3)
  - FUNGAL INFECTION [None]
  - LUNG NEOPLASM [None]
  - PULMONARY EMBOLISM [None]
